FAERS Safety Report 16369868 (Version 1)
Quarter: 2019Q2

REPORT INFORMATION
  Report Type: Spontaneous
  Country: US (occurrence: US)
  Receive Date: 20190530
  Receipt Date: 20190530
  Transmission Date: 20190711
  Serious: Yes (Death)
  Sender: FDA-Public Use
  Company Number: US-ALKEM LABORATORIES LIMITED-US-ALKEM-2019-02765

PATIENT

DRUGS (3)
  1. XYREM [Concomitant]
     Active Substance: SODIUM OXYBATE
     Indication: INSOMNIA
     Dosage: 3 GRAM ONCE NIGHTLY
     Route: 065
  2. XYREM [Concomitant]
     Active Substance: SODIUM OXYBATE
     Indication: PAIN
  3. OXYCODONE HYDROCHLORIDE. [Suspect]
     Active Substance: OXYCODONE HYDROCHLORIDE
     Indication: PRODUCT USED FOR UNKNOWN INDICATION
     Dosage: UNK
     Route: 065

REACTIONS (1)
  - Overdose [Fatal]
